FAERS Safety Report 8032709-5 (Version None)
Quarter: 2012Q1

REPORT INFORMATION
  Report Type: 
  Country: None (occurrence: None)
  Receive Date: 20120110
  Receipt Date: 20120105
  Transmission Date: 20120608
  Serious: Yes (Other)
  Sender: FDA-Public Use
  Company Number: US-AMGEN-USASP2012000573

PATIENT
  Age: 69 Year
  Sex: Female

DRUGS (2)
  1. ADVIL COLD AND SINUS PLUS [Concomitant]
     Dosage: UNK UNK, PRN
  2. PROLIA [Suspect]
     Indication: OSTEOPOROSIS POSTMENOPAUSAL
     Dosage: UNK UNK, Q6MO
     Dates: start: 20110101

REACTIONS (3)
  - MUSCULAR WEAKNESS [None]
  - JOINT CREPITATION [None]
  - HYPOAESTHESIA [None]
